FAERS Safety Report 9029811 (Version 2)
Quarter: 2013Q2

REPORT INFORMATION
  Report Type: Spontaneous
  Country: FR (occurrence: FR)
  Receive Date: 20130124
  Receipt Date: 20130618
  Transmission Date: 20140414
  Serious: Yes (Hospitalization)
  Sender: FDA-Public Use
  Company Number: FR-JNJFOC-20130108610

PATIENT
  Age: 30 Year
  Sex: Female

DRUGS (1)
  1. CILEST [Suspect]
     Indication: CONTRACEPTION
     Route: 048
     Dates: start: 20100528, end: 20120623

REACTIONS (2)
  - Ischaemic stroke [Recovered/Resolved]
  - Head injury [Unknown]
